FAERS Safety Report 16154708 (Version 1)
Quarter: 2019Q2

REPORT INFORMATION
  Report Type: Spontaneous
  Country: US (occurrence: US)
  Receive Date: 20190403
  Receipt Date: 20190403
  Transmission Date: 20190711
  Serious: No
  Sender: FDA-Public Use
  Company Number: US-MERZ NORTH AMERICA, INC.-19MRZ-00153

PATIENT
  Sex: Female

DRUGS (1)
  1. XEOMIN [Suspect]
     Active Substance: INCOBOTULINUMTOXINA
     Indication: SKIN COSMETIC PROCEDURE
     Dosage: 5 IUS AROUND EACH EYE WITH TOTAL OF 10 IUS
     Dates: start: 2019, end: 2019

REACTIONS (1)
  - Blepharospasm [Recovering/Resolving]

NARRATIVE: CASE EVENT DATE: 2019
